FAERS Safety Report 17198643 (Version 3)
Quarter: 2020Q1

REPORT INFORMATION
  Report Type: Spontaneous
  Country: US (occurrence: US)
  Receive Date: 20191225
  Receipt Date: 20200320
  Transmission Date: 20200409
  Serious: Yes (Death, Other)
  Sender: FDA-Public Use
  Company Number: US-ASTRAZENECA-2019SF86111

PATIENT
  Age: 87 Year
  Sex: Female
  Weight: 92.5 kg

DRUGS (92)
  1. NEXIUM [Suspect]
     Active Substance: ESOMEPRAZOLE MAGNESIUM
     Indication: GASTROOESOPHAGEAL REFLUX DISEASE
     Dosage: GENERIC (ESOMEPRAZOLE)
     Route: 065
     Dates: start: 2015, end: 2017
  2. NEXIUM [Suspect]
     Active Substance: ESOMEPRAZOLE MAGNESIUM
     Indication: GASTROOESOPHAGEAL REFLUX DISEASE
     Route: 048
     Dates: start: 20151219
  3. NEXIUM [Suspect]
     Active Substance: ESOMEPRAZOLE MAGNESIUM
     Indication: GASTROOESOPHAGEAL REFLUX DISEASE
     Dosage: GENERIC (ESOMEPRAZOLE)
     Route: 065
     Dates: start: 20160701
  4. METFORMIN [Concomitant]
     Active Substance: METFORMIN HYDROCHLORIDE
  5. HYDROCODONE HOMATROPINE [Concomitant]
     Active Substance: HOMATROPINE METHYLBROMIDE\HYDROCODONE BITARTRATE
  6. TRIAMCINOLONE [Concomitant]
     Active Substance: TRIAMCINOLONE
  7. FERROUS FUMARATE [Concomitant]
     Active Substance: FERROUS FUMARATE
  8. LISINOPRIL. [Concomitant]
     Active Substance: LISINOPRIL
  9. MAG-OXIDE [Concomitant]
     Active Substance: MAGNESIUM OXIDE
  10. NEXIUM [Suspect]
     Active Substance: ESOMEPRAZOLE MAGNESIUM
     Indication: GASTROOESOPHAGEAL REFLUX DISEASE
     Route: 048
  11. PROTONIX [Suspect]
     Active Substance: PANTOPRAZOLE SODIUM
     Indication: GASTROOESOPHAGEAL REFLUX DISEASE
     Dosage: GENERIC
     Route: 065
     Dates: start: 201703, end: 201706
  12. PROTONIX [Suspect]
     Active Substance: PANTOPRAZOLE SODIUM
     Indication: GASTROOESOPHAGEAL REFLUX DISEASE
     Dosage: GENERIC
     Route: 065
     Dates: start: 2017
  13. PEPCID COMPLETE [Concomitant]
     Active Substance: CALCIUM CARBONATE\FAMOTIDINE\MAGNESIUM HYDROXIDE
     Dates: start: 2016, end: 2017
  14. PRAVASTATIN SODIUM. [Concomitant]
     Active Substance: PRAVASTATIN SODIUM
  15. MEDROXYPROGESTERONE [Concomitant]
     Active Substance: MEDROXYPROGESTERONE
  16. DERMAZENE [Concomitant]
     Active Substance: HYDROCORTISONE\IODOQUINOL
  17. CELEBREX [Concomitant]
     Active Substance: CELECOXIB
  18. TRAZODONE [Concomitant]
     Active Substance: TRAZODONE HYDROCHLORIDE
  19. SULFAME THOXAZOLE [Concomitant]
  20. NEXIUM [Suspect]
     Active Substance: ESOMEPRAZOLE MAGNESIUM
     Indication: GASTROOESOPHAGEAL REFLUX DISEASE
     Route: 048
     Dates: start: 200807, end: 201512
  21. NEXIUM [Suspect]
     Active Substance: ESOMEPRAZOLE MAGNESIUM
     Indication: GASTROOESOPHAGEAL REFLUX DISEASE
     Dosage: GENERIC (ESOMEPRAZOLE)
     Route: 048
     Dates: start: 20171020
  22. NEXIUM [Suspect]
     Active Substance: ESOMEPRAZOLE MAGNESIUM
     Indication: GASTROOESOPHAGEAL REFLUX DISEASE
     Dosage: 30 MINS BEFORE BREAKFAST
     Route: 048
  23. BENICAR [Concomitant]
     Active Substance: OLMESARTAN MEDOXOMIL
  24. DOXYCYCLINE. [Concomitant]
     Active Substance: DOXYCYCLINE
  25. AMIODARONE [Concomitant]
     Active Substance: AMIODARONE
  26. BUMETANIDE. [Concomitant]
     Active Substance: BUMETANIDE
  27. ONDANSETRON [Concomitant]
     Active Substance: ONDANSETRON
  28. WARFARIN SODIUM. [Concomitant]
     Active Substance: WARFARIN SODIUM
  29. ROPINIROLE HCL [Concomitant]
     Active Substance: ROPINIROLE HYDROCHLORIDE
  30. HEMATINIC FOLIC ACID [Concomitant]
  31. FLORASTOR [Concomitant]
     Active Substance: SACCHAROMYCES CEREVISIAE
  32. FLUCONAZOLE. [Concomitant]
     Active Substance: FLUCONAZOLE
  33. QUETIAPINE FUMARATE. [Concomitant]
     Active Substance: QUETIAPINE FUMARATE
  34. NEXIUM [Suspect]
     Active Substance: ESOMEPRAZOLE MAGNESIUM
     Indication: GASTROOESOPHAGEAL REFLUX DISEASE
     Dosage: GENERIC (ESOMEPRAZOLE)
     Route: 065
     Dates: start: 201503, end: 201706
  35. NEXIUM [Suspect]
     Active Substance: ESOMEPRAZOLE MAGNESIUM
     Indication: GASTROOESOPHAGEAL REFLUX DISEASE
     Dosage: 30 MINS BEFORE BREAKFAST
     Route: 048
  36. NEXIUM [Suspect]
     Active Substance: ESOMEPRAZOLE MAGNESIUM
     Indication: GASTROOESOPHAGEAL REFLUX DISEASE
     Route: 048
     Dates: start: 20160113
  37. PREVACID [Suspect]
     Active Substance: LANSOPRAZOLE
     Indication: GASTROOESOPHAGEAL REFLUX DISEASE
     Route: 065
     Dates: start: 2011
  38. RANITIDINE. [Concomitant]
     Active Substance: RANITIDINE
     Indication: GASTROOESOPHAGEAL REFLUX DISEASE
     Dosage: GENERIC
     Dates: start: 2012
  39. GAVISCON [Concomitant]
     Active Substance: ALUMINUM HYDROXIDE\MAGNESIUM CARBONATE
     Dates: start: 2000, end: 2009
  40. MYLANTA [Concomitant]
     Active Substance: ALUMINUM HYDROXIDE\DIMETHICONE\MAGNESIUM HYDROXIDE
     Dates: start: 2000, end: 2009
  41. ZETIA [Concomitant]
     Active Substance: EZETIMIBE
  42. PROMETHAZINE [Concomitant]
     Active Substance: PROMETHAZINE HYDROCHLORIDE
  43. KLOR-CON [Concomitant]
     Active Substance: POTASSIUM CHLORIDE
  44. METOCLOPRAMIDE. [Concomitant]
     Active Substance: METOCLOPRAMIDE
  45. FUROSEMIDE. [Concomitant]
     Active Substance: FUROSEMIDE
  46. LIDOCAINE. [Concomitant]
     Active Substance: LIDOCAINE
  47. KETOCONAZOLE. [Concomitant]
     Active Substance: KETOCONAZOLE
  48. HYDROCODONE-ACETAMINOPHEN [Concomitant]
     Active Substance: ACETAMINOPHEN\HYDROCODONE
  49. CLOBETASOL [Concomitant]
     Active Substance: CLOBETASOL
  50. GLIPIZIDE. [Concomitant]
     Active Substance: GLIPIZIDE
  51. HALOPERIDOL. [Concomitant]
     Active Substance: HALOPERIDOL
  52. NEXIUM [Suspect]
     Active Substance: ESOMEPRAZOLE MAGNESIUM
     Indication: GASTROOESOPHAGEAL REFLUX DISEASE
     Dosage: GENERIC (ESOMEPRAZOLE)
     Route: 065
     Dates: start: 2009, end: 2016
  53. ATENOLOL. [Concomitant]
     Active Substance: ATENOLOL
  54. TRIMETHOPRIM. [Concomitant]
     Active Substance: TRIMETHOPRIM
  55. SIMVASTATIN. [Concomitant]
     Active Substance: SIMVASTATIN
  56. BETAMETHASONE. [Concomitant]
     Active Substance: BETAMETHASONE
  57. MUPIROCIN. [Concomitant]
     Active Substance: MUPIROCIN
  58. LORAZAPAM [Concomitant]
     Active Substance: LORAZEPAM
  59. MECLIZINE [Concomitant]
     Active Substance: MECLIZINE HYDROCHLORIDE
  60. MORPHINE SULFATE. [Concomitant]
     Active Substance: MORPHINE SULFATE
  61. CLONAZEPAM. [Concomitant]
     Active Substance: CLONAZEPAM
  62. OXYCODONE [Concomitant]
     Active Substance: OXYCODONE
  63. NEXIUM [Suspect]
     Active Substance: ESOMEPRAZOLE MAGNESIUM
     Indication: GASTROOESOPHAGEAL REFLUX DISEASE
     Route: 048
     Dates: start: 2008, end: 2015
  64. NEXIUM [Suspect]
     Active Substance: ESOMEPRAZOLE MAGNESIUM
     Indication: GASTROOESOPHAGEAL REFLUX DISEASE
     Dosage: GENERIC (ESOMEPRAZOLE)
     Route: 065
     Dates: start: 20160714
  65. PREVACID [Suspect]
     Active Substance: LANSOPRAZOLE
     Indication: GASTROOESOPHAGEAL REFLUX DISEASE
     Route: 065
     Dates: start: 201109, end: 201111
  66. AZOR [Concomitant]
     Active Substance: AMLODIPINE BESYLATE\OLMESARTAN MEDOXOMIL
  67. CITALOPRAM [Concomitant]
     Active Substance: CITALOPRAM HYDROBROMIDE
  68. ECONAZOLE NITRATE. [Concomitant]
     Active Substance: ECONAZOLE NITRATE
  69. SENNA PLUS [Concomitant]
     Active Substance: DOCUSATE SODIUM\SENNOSIDES\SENNOSIDES A AND B
  70. CLEARLAX POWDER [Concomitant]
  71. GABAPENTIN. [Concomitant]
     Active Substance: GABAPENTIN
  72. MILK OF MAGNESIA [Concomitant]
     Active Substance: MAGNESIUM HYDROXIDE
  73. NEXIUM [Suspect]
     Active Substance: ESOMEPRAZOLE MAGNESIUM
     Indication: GASTROOESOPHAGEAL REFLUX DISEASE
     Route: 048
     Dates: start: 20090603
  74. NEXIUM [Suspect]
     Active Substance: ESOMEPRAZOLE MAGNESIUM
     Indication: GASTROOESOPHAGEAL REFLUX DISEASE
     Route: 048
     Dates: start: 20110909
  75. PROTONIX [Suspect]
     Active Substance: PANTOPRAZOLE SODIUM
     Indication: GASTROOESOPHAGEAL REFLUX DISEASE
     Dosage: GENERIC
     Route: 048
     Dates: start: 20170307
  76. MELOXICAM. [Concomitant]
     Active Substance: MELOXICAM
  77. FLUOCINONIDE. [Concomitant]
     Active Substance: FLUOCINONIDE
  78. CICLOPIROX. [Concomitant]
     Active Substance: CICLOPIROX
  79. HYDROXYZINE HCL [Concomitant]
     Active Substance: HYDROXYZINE HYDROCHLORIDE
  80. DONNATAL ELIXIR [Concomitant]
  81. NEXIUM [Suspect]
     Active Substance: ESOMEPRAZOLE MAGNESIUM
     Indication: GASTROOESOPHAGEAL REFLUX DISEASE
     Route: 048
     Dates: start: 2009, end: 2016
  82. NEXIUM [Suspect]
     Active Substance: ESOMEPRAZOLE MAGNESIUM
     Indication: GASTROOESOPHAGEAL REFLUX DISEASE
     Dosage: GENERIC (ESOMEPRAZOLE)
     Route: 065
     Dates: start: 20150321
  83. PREVACID [Suspect]
     Active Substance: LANSOPRAZOLE
     Indication: GASTROOESOPHAGEAL REFLUX DISEASE
     Route: 065
     Dates: start: 20110921
  84. AMLODIPINE [Concomitant]
     Active Substance: AMLODIPINE BESYLATE
  85. PREMARIN [Concomitant]
     Active Substance: ESTROGENS, CONJUGATED
  86. TRAMADOL. [Concomitant]
     Active Substance: TRAMADOL
  87. CARAFATE [Concomitant]
     Active Substance: SUCRALFATE
  88. CARVEDILOL. [Concomitant]
     Active Substance: CARVEDILOL
  89. METRONIDAZOLE. [Concomitant]
     Active Substance: METRONIDAZOLE
  90. LEVOFLOXACIN. [Concomitant]
     Active Substance: LEVOFLOXACIN
  91. CLOTRIMAZOLE. [Concomitant]
     Active Substance: CLOTRIMAZOLE
  92. OSCIMIN [Concomitant]
     Active Substance: HYOSCYAMINE SULFATE

REACTIONS (1)
  - Gastric cancer [Fatal]

NARRATIVE: CASE EVENT DATE: 2015
